FAERS Safety Report 10078754 (Version 2)
Quarter: 2014Q2

REPORT INFORMATION
  Report Type: Spontaneous
  Country: DE (occurrence: DE)
  Receive Date: 20140415
  Receipt Date: 20140502
  Transmission Date: 20141212
  Serious: Yes (Other)
  Sender: FDA-Public Use
  Company Number: DE-PFIZER INC-2014100134

PATIENT
  Age: 62 Year
  Sex: Male

DRUGS (2)
  1. VFEND [Suspect]
     Indication: BRONCHOPULMONARY ASPERGILLOSIS
     Dosage: INFUSION
     Route: 042
     Dates: start: 201311
  2. VFEND [Suspect]
     Dosage: 200 MG, 1X/DAY
     Dates: start: 201311

REACTIONS (2)
  - Pneumothorax [Unknown]
  - Therapeutic response decreased [Not Recovered/Not Resolved]
